FAERS Safety Report 5797660-X (Version None)
Quarter: 2008Q2

REPORT INFORMATION
  Report Type: 
  Country: None (occurrence: None)
  Receive Date: 20080618
  Receipt Date: 20070706
  Transmission Date: 20081010
  Serious: Yes (Other)
  Sender: FDA-Public Use
  Company Number: 200713975US

PATIENT
  Age: 4 Year
  Sex: Female
  Weight: 20.9 kg

DRUGS (5)
  1. LANTUS [Suspect]
     Indication: TYPE 1 DIABETES MELLITUS
     Dosage: 5 U QAM
     Dates: start: 20070317, end: 20070515
  2. LANTUS [Suspect]
     Indication: TYPE 1 DIABETES MELLITUS
     Dosage: 5 U
     Dates: start: 20070516, end: 20070501
  3. LANTUS [Suspect]
     Indication: TYPE 1 DIABETES MELLITUS
     Dosage: 5 U QAM
     Dates: start: 20070501
  4. HUMALOG [Concomitant]
  5. INSULIN INJECTION, ISOPHANE (NPH INSULIN) [Concomitant]

REACTIONS (2)
  - HYPERGLYCAEMIA [None]
  - KETONURIA [None]
